FAERS Safety Report 17189386 (Version 4)
Quarter: 2021Q1

REPORT INFORMATION
  Report Type: Report from Study
  Country: US (occurrence: US)
  Receive Date: 20191223
  Receipt Date: 20210219
  Transmission Date: 20210419
  Serious: No
  Sender: FDA-Public Use
  Company Number: NVSC2019US075974

PATIENT
  Age: 80 Year
  Sex: Female
  Weight: 76.7 kg

DRUGS (1)
  1. ENTRESTO [Suspect]
     Active Substance: SACUBITRIL\VALSARTAN
     Indication: PRODUCT USED FOR UNKNOWN INDICATION
     Dosage: 1 DF (97MG OF SACUBITRIL AND 103 MG OF VALSARTAN), BID
     Route: 048
     Dates: start: 201903

REACTIONS (7)
  - Arthralgia [Unknown]
  - Arthropathy [Unknown]
  - Swelling [Unknown]
  - Fall [Unknown]
  - Pain in extremity [Unknown]
  - Weight fluctuation [Unknown]
  - Weight increased [Unknown]

NARRATIVE: CASE EVENT DATE: 201903
